FAERS Safety Report 7757315-9 (Version None)
Quarter: 2011Q3

REPORT INFORMATION
  Report Type: 
  Country: None (occurrence: None)
  Receive Date: 20110916
  Receipt Date: 20110907
  Transmission Date: 20111222
  Serious: Yes (Other)
  Sender: FDA-Public Use
  Company Number: US-ABBOTT-11P-163-0837667-00

PATIENT
  Sex: Female

DRUGS (4)
  1. OXYCODONE HCL [Concomitant]
     Indication: PAIN
  2. IMURAN [Concomitant]
     Indication: CROHN'S DISEASE
  3. SOMA [Concomitant]
     Indication: CHEST PAIN
  4. HUMIRA [Suspect]
     Indication: CROHN'S DISEASE
     Route: 058
     Dates: start: 20090101, end: 20110701

REACTIONS (12)
  - VOMITING [None]
  - ENTEROSTOMY CLOSURE [None]
  - OROPHARYNGEAL PAIN [None]
  - SPUTUM DISCOLOURED [None]
  - FISTULA [None]
  - MIGRAINE [None]
  - PARAESTHESIA [None]
  - COUGH [None]
  - INJECTION SITE HAEMORRHAGE [None]
  - ABDOMINAL PAIN [None]
  - DIARRHOEA [None]
  - INJECTION SITE ERYTHEMA [None]
